FAERS Safety Report 4359052-X (Version None)
Quarter: 2004Q2

REPORT INFORMATION
  Report Type: 
  Country: None (occurrence: None)
  Receive Date: 20040517
  Receipt Date: 20040505
  Transmission Date: 20050107
  Serious: Yes (Life-Threatening, Hospitalization)
  Sender: FDA-Public Use
  Company Number: DE-BRISTOL-MYERS SQUIBB COMPANY-12584017

PATIENT
  Age: 73 Year
  Sex: Female

DRUGS (7)
  1. GLUCOPHAGE [Interacting]
     Indication: DIABETES MELLITUS
     Route: 048
     Dates: start: 20010501, end: 20030723
  2. DELIX [Interacting]
     Indication: HYPERTENSION
     Route: 048
  3. ASPIRIN [Suspect]
     Indication: CORONARY ARTERY DISEASE
     Route: 048
     Dates: start: 20000901, end: 20030728
  4. HUMINSULIN PROFIL III [Suspect]
     Indication: DIABETES MELLITUS
     Dosage: DOSE:  20-0-10 IU
     Route: 058
     Dates: start: 20020101, end: 20030723
  5. IBU [Suspect]
     Indication: PAIN
     Route: 048
     Dates: start: 20030101, end: 20030728
  6. NITRAZEPAM [Concomitant]
     Indication: SLEEP DISORDER
     Route: 048
  7. ACTONEL [Concomitant]
     Indication: OSTEOPOROSIS
     Route: 048
     Dates: start: 20030101

REACTIONS (4)
  - ATRIAL FIBRILLATION [None]
  - DRUG INTERACTION [None]
  - GASTRIC ULCER [None]
  - HYPOGLYCAEMIA [None]
